FAERS Safety Report 5590113-3 (Version None)
Quarter: 2008Q1

REPORT INFORMATION
  Report Type: 
  Country: None (occurrence: None)
  Receive Date: 20080114
  Receipt Date: 20070320
  Transmission Date: 20080703
  Serious: No
  Sender: FDA-Public Use
  Company Number: US-ABBOTT-07P-163-0362751-00

PATIENT
  Sex: Female
  Weight: 12.712 kg

DRUGS (1)
  1. OMNICEF [Suspect]
     Indication: STREPTOCOCCAL INFECTION
     Route: 048
     Dates: start: 20070305, end: 20070307

REACTIONS (2)
  - DIARRHOEA [None]
  - RASH [None]
